FAERS Safety Report 10035871 (Version 1)
Quarter: 2014Q1

REPORT INFORMATION
  Report Type: Spontaneous
  Country: US (occurrence: US)
  Receive Date: 20140325
  Receipt Date: 20140325
  Transmission Date: 20141002
  Serious: No
  Sender: FDA-Public Use
  Company Number: US-BAYER-2014-044045

PATIENT
  Age: 22 Year
  Sex: Female
  Weight: 104 kg

DRUGS (1)
  1. MIDOL EXTENDED RELIEF CAPLET [Suspect]
     Dosage: UNK DF,
     Route: 048
     Dates: start: 20140320

REACTIONS (1)
  - Extra dose administered [None]
